FAERS Safety Report 6730910-1 (Version None)
Quarter: 2010Q2

REPORT INFORMATION
  Report Type: 
  Country: None (occurrence: None)
  Receive Date: 20100518
  Receipt Date: 20100507
  Transmission Date: 20101027
  Serious: Yes (Other)
  Sender: FDA-Public Use
  Company Number: PHHY2010JP25740

PATIENT
  Sex: Female

DRUGS (2)
  1. ZOMETA [Suspect]
     Indication: BONE LESION
     Route: 042
  2. BISPHOSPHONATES [Suspect]

REACTIONS (2)
  - GINGIVAL DISORDER [None]
  - OSTEONECROSIS OF JAW [None]
